FAERS Safety Report 6636906-2 (Version None)
Quarter: 2010Q1

REPORT INFORMATION
  Report Type: 
  Country: None (occurrence: None)
  Receive Date: 20100316
  Receipt Date: 20100305
  Transmission Date: 20100710
  Serious: Yes (Other)
  Sender: FDA-Public Use
  Company Number: DE-GENZYME-CLOF-1000891

PATIENT
  Sex: Male
  Weight: 65 kg

DRUGS (7)
  1. EVOLTRA [Suspect]
     Indication: ACUTE MYELOID LEUKAEMIA
     Dosage: 30 MG/M2, QDX5
     Route: 042
     Dates: start: 20100226, end: 20100302
  2. PANTOZOL [Concomitant]
     Indication: GASTRITIS
     Dosage: 40 MG, UNK
     Route: 065
  3. VIGANTOLETTEN [Concomitant]
     Indication: OSTEOPOROSIS
     Dosage: 1 G, UNK
     Route: 065
  4. TRAMAL [Concomitant]
     Indication: PAIN
     Dosage: 10 NG, UNK
     Route: 065
     Dates: end: 20100304
  5. CLOTRIMAZOLE [Concomitant]
     Indication: DRUG USE FOR UNKNOWN INDICATION
     Dosage: 20 MG, UNK
     Route: 065
     Dates: end: 20100304
  6. FLUCONAZOLE [Concomitant]
     Indication: DRUG USE FOR UNKNOWN INDICATION
     Dosage: 200 MG, UNK
     Route: 048
  7. TAZOBAC [Concomitant]
     Indication: DRUG USE FOR UNKNOWN INDICATION

REACTIONS (5)
  - BLISTER [None]
  - FATIGUE [None]
  - HEPATORENAL SYNDROME [None]
  - PALMAR-PLANTAR ERYTHRODYSAESTHESIA SYNDROME [None]
  - PYREXIA [None]
